FAERS Safety Report 18019724 (Version 1)
Quarter: 2020Q3

REPORT INFORMATION
  Report Type: Spontaneous
  Country: US (occurrence: US)
  Receive Date: 20200714
  Receipt Date: 20200714
  Transmission Date: 20201103
  Serious: No
  Sender: FDA-Public Use
  Company Number: US-GW PHARMA-202007USGW02462

PATIENT

DRUGS (1)
  1. EPIDIOLEX [Suspect]
     Active Substance: CANNABIDIOL
     Indication: LENNOX-GASTAUT SYNDROME
     Dosage: 2000 MILLIGRAM, BID
     Route: 048
     Dates: start: 201912, end: 202007

REACTIONS (2)
  - Hypersomnia [Unknown]
  - Diarrhoea [Unknown]
